FAERS Safety Report 5508030-3 (Version None)
Quarter: 2007Q4

REPORT INFORMATION
  Report Type: 
  Country: None (occurrence: None)
  Receive Date: 20071106
  Receipt Date: 20071026
  Transmission Date: 20080405
  Serious: Yes (Hospitalization)
  Sender: FDA-Public Use
  Company Number: US-WYE-H00902207

PATIENT
  Sex: Male
  Weight: 63.56 kg

DRUGS (5)
  1. EFFEXOR XR [Suspect]
     Indication: ANXIETY
     Route: 048
     Dates: start: 20070701, end: 20070101
  2. EFFEXOR XR [Suspect]
     Dosage: ^GRADUALLY INCREASED^
     Route: 048
     Dates: start: 20070101, end: 20070101
  3. EFFEXOR XR [Suspect]
     Route: 048
     Dates: start: 20070101, end: 20070101
  4. EFFEXOR XR [Suspect]
     Dosage: ^TAPERED DOWN^
     Route: 048
     Dates: start: 20071001, end: 20071010
  5. HERBAL PREPARATION [Concomitant]
     Dosage: UNKNOWN

REACTIONS (3)
  - DRUG INEFFECTIVE [None]
  - PULMONARY THROMBOSIS [None]
  - THROMBOSIS [None]
